FAERS Safety Report 9495748 (Version 2)
Quarter: 2013Q3

REPORT INFORMATION
  Report Type: Spontaneous
  Country: AU (occurrence: AU)
  Receive Date: 20130903
  Receipt Date: 20130910
  Transmission Date: 20140515
  Serious: Yes (Other)
  Sender: FDA-Public Use
  Company Number: AU-PFIZER INC-2013247415

PATIENT
  Age: 23 Year
  Sex: Female

DRUGS (4)
  1. CYTARABINE [Suspect]
     Indication: ACUTE MYELOID LEUKAEMIA
     Dosage: 100 MG/M2 DAILY FOR SEVEN DAYS
     Route: 042
  2. CYTARABINE [Suspect]
     Dosage: 100 MG/M2 PER DAY, CYCLIC 5 DAY COURSE AT FOUR WEEK INTERVALS
     Route: 058
  3. DAUNORUBICIN HCL [Suspect]
     Indication: ACUTE MYELOID LEUKAEMIA
     Dosage: 45 MG/M2 PER DAY, CYCLIC ON DAYS 1, 2 AND 3
     Route: 042
  4. THIOGUANINE [Suspect]
     Indication: ACUTE MYELOID LEUKAEMIA
     Dosage: 100 MG/M2 PER DAY, CYCLIC 5 DAY COURSE AT FOUR WEEK INTERVALS
     Route: 048

REACTIONS (3)
  - Pancytopenia [Unknown]
  - Thrombocytopenia [Unknown]
  - Pyrexia [Unknown]
